FAERS Safety Report 19408617 (Version 1)
Quarter: 2021Q2

REPORT INFORMATION
  Report Type: Spontaneous
  Country: US (occurrence: US)
  Receive Date: 20210612
  Receipt Date: 20210612
  Transmission Date: 20210717
  Serious: No
  Sender: FDA-Public Use
  Company Number: US-TEVA-2021-US-1918525

PATIENT
  Sex: Female

DRUGS (1)
  1. AJOVY [Suspect]
     Active Substance: FREMANEZUMAB-VFRM
     Dosage: AUTOINJECTOR 225 MG/ 1.5 ML
     Route: 065

REACTIONS (4)
  - Migraine [Unknown]
  - Injection site haemorrhage [Unknown]
  - Drug dose omission by device [Unknown]
  - Accidental exposure to product [Unknown]
